FAERS Safety Report 9356864 (Version 2)
Quarter: 2013Q3

REPORT INFORMATION
  Report Type: Spontaneous
  Country: JP (occurrence: JP)
  Receive Date: 20130620
  Receipt Date: 20130911
  Transmission Date: 20140515
  Serious: Yes (Other)
  Sender: FDA-Public Use
  Company Number: JP-PFIZER INC-2013177462

PATIENT
  Age: 62 Year
  Sex: Male

DRUGS (1)
  1. METHYLPREDNISOLONE SODIUM SUCCINATE [Suspect]
     Indication: ENCEPHALITIS
     Dosage: 1000 MG, 1X/DAY

REACTIONS (2)
  - Delirium [Recovered/Resolved]
  - Hyponatraemia [Unknown]
